FAERS Safety Report 25599786 (Version 1)
Quarter: 2025Q3

REPORT INFORMATION
  Report Type: Report from Study
  Country: US (occurrence: US)
  Receive Date: 20250724
  Receipt Date: 20250724
  Transmission Date: 20251021
  Serious: Yes (Hospitalization, Other)
  Sender: UCB
  Company Number: US-UCBSA-2025025141

PATIENT
  Age: 57 Year
  Sex: Female
  Weight: 73.94 kg

DRUGS (2)
  1. FINTEPLA [Suspect]
     Active Substance: FENFLURAMINE
     Indication: Lennox-Gastaut syndrome
     Dosage: 3 MILLILITER, 2X/DAY (BID)
     Dates: start: 20241030
  2. FINTEPLA [Suspect]
     Active Substance: FENFLURAMINE

REACTIONS (2)
  - Vomiting [Recovered/Resolved]
  - Aortic valve incompetence [Unknown]

NARRATIVE: CASE EVENT DATE: 20250410
